FAERS Safety Report 15447091 (Version 2)
Quarter: 2018Q4

REPORT INFORMATION
  Report Type: Report from Study
  Country: US (occurrence: US)
  Receive Date: 20180928
  Receipt Date: 20181015
  Transmission Date: 20190204
  Serious: No
  Sender: FDA-Public Use
  Company Number: PHEH2018US039675

PATIENT
  Age: 71 Year
  Sex: Female

DRUGS (2)
  1. COSENTYX [Suspect]
     Active Substance: SECUKINUMAB
     Indication: PSORIASIS
     Dosage: 300 MG, QW
     Route: 058
     Dates: start: 20180919
  2. ASPIRIN. [Concomitant]
     Active Substance: ASPIRIN
     Indication: PRODUCT USED FOR UNKNOWN INDICATION
     Route: 065

REACTIONS (10)
  - Pruritus [Unknown]
  - Device issue [Unknown]
  - Psoriasis [Unknown]
  - Oropharyngeal pain [Recovering/Resolving]
  - Musculoskeletal stiffness [Recovering/Resolving]
  - Tonsillitis [Recovering/Resolving]
  - Pain in extremity [Unknown]
  - Product leakage [Unknown]
  - Pyrexia [Recovering/Resolving]
  - Migraine [Unknown]

NARRATIVE: CASE EVENT DATE: 20181003
